FAERS Safety Report 4647912-1 (Version None)
Quarter: 2005Q2

REPORT INFORMATION
  Report Type: 
  Country: None (occurrence: None)
  Receive Date: 20050426
  Receipt Date: 20050426
  Transmission Date: 20051028
  Serious: Yes (Hospitalization)
  Sender: FDA-Public Use
  Company Number: None

PATIENT
  Age: 7 Year
  Sex: Male
  Weight: 20 kg

DRUGS (6)
  1. CEFTRIAXONE [Suspect]
     Indication: URINARY TRACT INFECTION
     Dosage: 2 G QD PR
     Dates: start: 20050125, end: 20050125
  2. PREDNISONE [Concomitant]
  3. SODIUM BICARB [Concomitant]
  4. VIT D [Concomitant]
  5. SIRLOIMUS [Concomitant]
  6. SIMVASTATIN [Concomitant]

REACTIONS (4)
  - CHILLS [None]
  - ERYTHEMA [None]
  - PRURITUS [None]
  - RASH GENERALISED [None]
